FAERS Safety Report 4304376-5 (Version None)
Quarter: 2004Q1

REPORT INFORMATION
  Report Type: 
  Country: None (occurrence: None)
  Receive Date: 20040224
  Receipt Date: 20040213
  Transmission Date: 20041129
  Serious: Yes (Death)
  Sender: FDA-Public Use
  Company Number: USA-2003-0007482

PATIENT
  Age: 42 Year
  Sex: Male
  Weight: 107.5 kg

DRUGS (10)
  1. OXYCODONE HCL [Suspect]
  2. HYDROCODONE BITARTRATE (SIMILAR TO NDA 59,175) (HYDROCODONE BITARTRATE [Suspect]
  3. DOXEPIN HCL [Suspect]
  4. MEPROBAMATE [Suspect]
  5. CYCLOBENZAPRINE HCL [Suspect]
  6. RANITIDINE [Suspect]
  7. CODEINE (CODEINE) [Suspect]
  8. DIPHENHYDRAMINE HCL [Suspect]
  9. CAFFEINE (CAFFEINE) [Suspect]
  10. NICOTINE [Suspect]

REACTIONS (7)
  - COMA [None]
  - HEPATIC STEATOSIS [None]
  - HEPATOMEGALY [None]
  - OBESITY [None]
  - PLEURAL ADHESION [None]
  - PULMONARY CONGESTION [None]
  - PULMONARY OEDEMA [None]
